FAERS Safety Report 24247435 (Version 1)
Quarter: 2024Q3

REPORT INFORMATION
  Report Type: Spontaneous
  Country: FR (occurrence: FR)
  Receive Date: 20240826
  Receipt Date: 20240826
  Transmission Date: 20241016
  Serious: Yes (Other)
  Sender: HIKMA
  Company Number: None

PATIENT

DRUGS (6)
  1. IRINOTECAN [Suspect]
     Active Substance: IRINOTECAN
     Indication: Rectal cancer
     Dosage: UNKNOWN
     Route: 042
     Dates: start: 20240722, end: 20240722
  2. ATROPINE [Concomitant]
     Active Substance: ATROPINE
     Indication: Product used for unknown indication
     Dosage: UNKNOWN
     Route: 065
  3. LEUCOVORIN CALCIUM [Concomitant]
     Active Substance: LEUCOVORIN CALCIUM
     Indication: Product used for unknown indication
     Dosage: UNKNOWN
     Route: 065
  4. FLUOROURACIL [Concomitant]
     Active Substance: FLUOROURACIL
     Indication: Product used for unknown indication
     Dosage: UNKNOWN
     Route: 065
  5. OXALIPLATIN [Concomitant]
     Active Substance: OXALIPLATIN
     Indication: Product used for unknown indication
     Dosage: UNKNOWN
     Route: 065
  6. ONDANSETRON [Concomitant]
     Active Substance: ONDANSETRON
     Indication: Product used for unknown indication
     Dosage: UNKNOWN
     Route: 065

REACTIONS (1)
  - Dysarthria [Recovered/Resolved]

NARRATIVE: CASE EVENT DATE: 20240722
